FAERS Safety Report 15084750 (Version 1)
Quarter: 2018Q2

REPORT INFORMATION
  Report Type: Spontaneous
  Country: DE (occurrence: DE)
  Receive Date: 20180628
  Receipt Date: 20180628
  Transmission Date: 20180711
  Serious: Yes (Other)
  Sender: FDA-Public Use
  Company Number: DE-009507513-1806DEU011601

PATIENT
  Sex: Male

DRUGS (1)
  1. XELEVIA [Suspect]
     Active Substance: SITAGLIPTIN PHOSPHATE
     Indication: TYPE 2 DIABETES MELLITUS
     Dosage: 100 MG/DAY
     Route: 048
     Dates: start: 20180425

REACTIONS (2)
  - Nasopharyngitis [Unknown]
  - Drug resistance [Unknown]

NARRATIVE: CASE EVENT DATE: 2018
